FAERS Safety Report 8392979-0 (Version None)
Quarter: 2012Q2

REPORT INFORMATION
  Report Type: 
  Country: None (occurrence: None)
  Receive Date: 20120529
  Receipt Date: 20120523
  Transmission Date: 20120825
  Serious: Yes (Hospitalization)
  Sender: FDA-Public Use
  Company Number: US-PFIZER INC-2010049113

PATIENT

DRUGS (6)
  1. XANAX [Concomitant]
     Dosage: UNK
  2. MAXZIDE [Concomitant]
  3. LIPITOR [Suspect]
     Dosage: 40 MG, 1 1/2 TABLET DAILY
  4. TRAZODONE [Concomitant]
     Dosage: UNK
  5. PAXIL [Concomitant]
     Dosage: UNK
  6. DARVOCET-N 50 [Concomitant]

REACTIONS (1)
  - ARTHROPATHY [None]
